FAERS Safety Report 5873886-1 (Version None)
Quarter: 2008Q3

REPORT INFORMATION
  Report Type: 
  Country: None (occurrence: None)
  Receive Date: 20080905
  Receipt Date: 20080905
  Transmission Date: 20090109
  Serious: Yes (Hospitalization)
  Sender: FDA-Public Use
  Company Number: None

PATIENT
  Age: 16 Year
  Sex: Female
  Weight: 49.8957 kg

DRUGS (1)
  1. AMBIEN CR [Suspect]
     Indication: INSOMNIA
     Dosage: 12.5MG 1 PO
     Route: 048
     Dates: start: 20080903, end: 20080903

REACTIONS (7)
  - DELIRIUM [None]
  - DISORIENTATION [None]
  - DRUG HYPERSENSITIVITY [None]
  - DYSPNOEA [None]
  - DYSSTASIA [None]
  - EYE SWELLING [None]
  - URTICARIA [None]
